FAERS Safety Report 6106803-X (Version None)
Quarter: 2009Q1

REPORT INFORMATION
  Report Type: 
  Country: None (occurrence: None)
  Receive Date: 20090304
  Receipt Date: 20090222
  Transmission Date: 20090719
  Serious: Yes (Hospitalization, Other)
  Sender: FDA-Public Use
  Company Number: POMP-1000317

PATIENT
  Age: 3 Month
  Sex: Male

DRUGS (9)
  1. MYOZYME [Suspect]
     Indication: GLYCOGEN STORAGE DISEASE TYPE II
     Dosage: 20 MG/KG, Q2W, INTRAVENOUS
     Route: 042
     Dates: start: 20080101
  2. STEROIDS [Concomitant]
  3. PARACETAMOL (PARACETAMOL) [Concomitant]
  4. PREDNISOLONE [Concomitant]
  5. METHYLPREDNISOLONE 16MG TAB [Concomitant]
  6. ANTIHISTAMINES [Concomitant]
  7. HYDROCORTISONE [Concomitant]
  8. ACETAMINOPHEN [Concomitant]
  9. ZANTAC 150 [Concomitant]

REACTIONS (6)
  - DIARRHOEA [None]
  - DRUG INEFFECTIVE [None]
  - ERYTHEMA [None]
  - LUNG INFECTION [None]
  - RASH ERYTHEMATOUS [None]
  - WHEEZING [None]
